FAERS Safety Report 9036838 (Version 1)
Quarter: 2013Q1

REPORT INFORMATION
  Report Type: Spontaneous
  Country: US (occurrence: None)
  Receive Date: 20130118
  Receipt Date: 20130118
  Transmission Date: 20140127
  Serious: Yes (Other)
  Sender: FDA-Public Use
  Company Number: None

PATIENT
  Age: 52 Year
  Sex: Female

DRUGS (1)
  1. OXYCODONE/APAP [Suspect]
     Indication: PAIN
     Dosage: 1 TO 2 DOSES, EVERY 8 HOURS
     Dates: start: 20130115, end: 20130117

REACTIONS (2)
  - Drug ineffective [None]
  - Product quality issue [None]
